FAERS Safety Report 24747335 (Version 1)
Quarter: 2024Q4

REPORT INFORMATION
  Report Type: Spontaneous
  Country: CN (occurrence: CN)
  Receive Date: 20241218
  Receipt Date: 20241218
  Transmission Date: 20250115
  Serious: Yes (Hospitalization)
  Sender: ROCHE
  Company Number: CN-ROCHE-10000157188

PATIENT
  Age: 76 Year
  Sex: Female
  Weight: 46 kg

DRUGS (2)
  1. BEVACIZUMAB [Suspect]
     Active Substance: BEVACIZUMAB
     Indication: Anal cancer
     Route: 042
     Dates: start: 20241203, end: 20241203
  2. OXALIPLATIN FOR INJECTION [Suspect]
     Active Substance: OXALIPLATIN
     Indication: Anal cancer
     Route: 042
     Dates: start: 20241203, end: 20241203

REACTIONS (2)
  - Myelosuppression [Recovering/Resolving]
  - Off label use [Unknown]

NARRATIVE: CASE EVENT DATE: 20241206
